FAERS Safety Report 5899607-4 (Version None)
Quarter: 2008Q3

REPORT INFORMATION
  Report Type: 
  Country: None (occurrence: None)
  Receive Date: 20080926
  Receipt Date: 20080924
  Transmission Date: 20090109
  Serious: Yes (Life-Threatening)
  Sender: FDA-Public Use
  Company Number: PHEH2008US08545

PATIENT
  Sex: Female

DRUGS (3)
  1. TEKTURNA [Suspect]
     Route: 048
  2. ACE INHIBITOR NOS [Concomitant]
  3. ANGIOTENSIN II ANTAGONISTS [Concomitant]

REACTIONS (3)
  - APPARENT LIFE THREATENING EVENT [None]
  - BLOOD CREATININE INCREASED [None]
  - FEELING ABNORMAL [None]
